FAERS Safety Report 13768242 (Version 3)
Quarter: 2020Q2

REPORT INFORMATION
  Report Type: Report from Study
  Country: TW (occurrence: TW)
  Receive Date: 20170719
  Receipt Date: 20200615
  Transmission Date: 20200713
  Serious: Yes (Hospitalization, Other)
  Sender: FDA-Public Use
  Company Number: TW-BRISTOL-MYERS SQUIBB COMPANY-BMS-2017-060687

PATIENT
  Age: 59 Year
  Sex: Male
  Weight: 51.5 kg

DRUGS (1)
  1. NIVOLUMAB [Suspect]
     Active Substance: NIVOLUMAB
     Indication: LIP AND/OR ORAL CAVITY CANCER
     Dosage: 3 MG/KG, Q2WK
     Route: 042
     Dates: start: 20170623

REACTIONS (11)
  - Muscular weakness [Unknown]
  - Decreased appetite [Unknown]
  - Haemoptysis [Unknown]
  - Paraplegia [Recovered/Resolved]
  - Malignant neoplasm progression [Unknown]
  - Hypercalcaemia [Recovering/Resolving]
  - Intentional product use issue [Unknown]
  - Fatigue [Unknown]
  - Back pain [Unknown]
  - Spinal laminectomy [Unknown]
  - Peptic ulcer perforation [Unknown]

NARRATIVE: CASE EVENT DATE: 20170624
